FAERS Safety Report 22100366 (Version 2)
Quarter: 2023Q4

REPORT INFORMATION
  Report Type: Report from Study
  Country: DE (occurrence: DE)
  Receive Date: 20230315
  Receipt Date: 20231128
  Transmission Date: 20240110
  Serious: Yes (Hospitalization, Other)
  Sender: FDA-Public Use
  Company Number: DE-ABBVIE-4341141

PATIENT
  Age: 59 Year
  Sex: Male
  Weight: 107 kg

DRUGS (3)
  1. SKYRIZI [Suspect]
     Active Substance: RISANKIZUMAB-RZAA
     Indication: Psoriasis
     Route: 058
     Dates: start: 20190708
  2. SKYRIZI [Suspect]
     Active Substance: RISANKIZUMAB-RZAA
     Route: 058
     Dates: start: 20200710
  3. ELIQUIS [Concomitant]
     Active Substance: APIXABAN
     Indication: Anticoagulant therapy

REACTIONS (17)
  - Arterial occlusive disease [Recovered/Resolved with Sequelae]
  - Chronic obstructive pulmonary disease [Unknown]
  - Peripheral artery stenosis [Recovering/Resolving]
  - Procedural pain [Unknown]
  - Aortic aneurysm [Recovered/Resolved]
  - Hyponatraemia [Recovered/Resolved]
  - Hyperkalaemia [Not Recovered/Not Resolved]
  - Acute myocardial infarction [Recovering/Resolving]
  - Emphysema [Recovering/Resolving]
  - Peripheral artery occlusion [Recovering/Resolving]
  - Chronic kidney disease [Unknown]
  - Hypertension [Recovered/Resolved]
  - Cerebral infarction [Unknown]
  - Sleep apnoea syndrome [Recovered/Resolved]
  - Dysarthria [Unknown]
  - Iliac artery stenosis [Recovered/Resolved with Sequelae]
  - Hyperlipidaemia [Unknown]

NARRATIVE: CASE EVENT DATE: 20200301
